FAERS Safety Report 20373155 (Version 1)
Quarter: 2022Q1

REPORT INFORMATION
  Report Type: Report from Study
  Country: CL (occurrence: CL)
  Receive Date: 20220125
  Receipt Date: 20220125
  Transmission Date: 20220423
  Serious: Yes (Hospitalization, Other)
  Sender: FDA-Public Use
  Company Number: CL-JNJFOC-20220135365

PATIENT
  Age: 6 Decade
  Sex: Female

DRUGS (1)
  1. SIMPONI [Suspect]
     Active Substance: GOLIMUMAB
     Indication: Psoriatic arthropathy
     Route: 058
     Dates: start: 20210503

REACTIONS (7)
  - Pyelonephritis [Unknown]
  - Renal failure [Unknown]
  - Kidney perforation [Unknown]
  - Nephrolithiasis [Unknown]
  - Neoplasm [Unknown]
  - Thyroid disorder [Unknown]
  - Blood calcium increased [Unknown]
